FAERS Safety Report 6183575-4 (Version None)
Quarter: 2009Q2

REPORT INFORMATION
  Report Type: 
  Country: None (occurrence: None)
  Receive Date: 20090508
  Receipt Date: 20090427
  Transmission Date: 20091009
  Serious: Yes (Hospitalization, Other)
  Sender: FDA-Public Use
  Company Number: US-PFIZER INC-2008048978

PATIENT
  Sex: Female
  Weight: 68 kg

DRUGS (18)
  1. CALAN [Suspect]
     Indication: HYPERTENSION
     Route: 048
     Dates: start: 20070101
  2. CATAPRES [Concomitant]
  3. AMARYL [Concomitant]
     Indication: DIABETES MELLITUS
  4. BENICAR [Concomitant]
  5. ACETYLSALICYLIC ACID [Concomitant]
  6. POTASSIUM CHLORIDE [Concomitant]
  7. NEXIUM [Concomitant]
  8. IBANDRONATE SODIUM [Concomitant]
  9. PREDNISONE [Concomitant]
  10. ZETIA [Concomitant]
  11. LEVOXYL [Concomitant]
  12. LYRICA [Concomitant]
  13. ALISKIREN [Concomitant]
  14. METHOTREXATE SODIUM [Concomitant]
  15. ASCORBIC ACID [Concomitant]
  16. MULTI-VITAMINS [Concomitant]
  17. FISH OIL [Concomitant]
  18. INSULIN [Concomitant]

REACTIONS (5)
  - ABDOMINAL DISCOMFORT [None]
  - DIARRHOEA [None]
  - HERNIA [None]
  - SLEEP DISORDER [None]
  - WEIGHT INCREASED [None]
